FAERS Safety Report 6408415-7 (Version None)
Quarter: 2009Q4

REPORT INFORMATION
  Report Type: 
  Country: None (occurrence: None)
  Receive Date: 20091021
  Receipt Date: 20091008
  Transmission Date: 20100525
  Serious: Yes (Life-Threatening, Hospitalization)
  Sender: FDA-Public Use
  Company Number: FR-JNJFOC-20091004717

PATIENT
  Sex: Male

DRUGS (7)
  1. TOPALGIC [Suspect]
     Indication: ANAESTHESIA
     Route: 042
  2. SUFENTANIL [Suspect]
     Indication: ANAESTHESIA
     Route: 042
  3. KETOPROFEN [Suspect]
     Indication: ANAESTHESIA
     Route: 042
  4. MIDAZOLAM HCL [Suspect]
     Indication: ANAESTHESIA
     Route: 042
  5. PROPOFOL [Suspect]
     Indication: ANAESTHESIA
     Route: 042
  6. SEVOFLURANE [Suspect]
     Indication: ANAESTHESIA
     Route: 055
  7. PERFALGAN [Suspect]
     Indication: ANAESTHESIA
     Route: 042

REACTIONS (6)
  - ACUTE PULMONARY OEDEMA [None]
  - CIRCULATORY COLLAPSE [None]
  - CONGESTIVE CARDIOMYOPATHY [None]
  - CONVULSION [None]
  - MULTI-ORGAN FAILURE [None]
  - MYDRIASIS [None]
